FAERS Safety Report 14703269 (Version 1)
Quarter: 2018Q2

REPORT INFORMATION
  Report Type: Spontaneous
  Country: FR (occurrence: FR)
  Receive Date: 20180402
  Receipt Date: 20180402
  Transmission Date: 20180711
  Serious: Yes (Hospitalization)
  Sender: FDA-Public Use
  Company Number: FR-MERCK KGAA-2044901

PATIENT
  Age: 43 Year
  Sex: Female

DRUGS (1)
  1. NOVOTHYROX [Suspect]
     Active Substance: LEVOTHYROXINE SODIUM
     Indication: PRODUCT USED FOR UNKNOWN INDICATION
     Dates: end: 20171012

REACTIONS (32)
  - Back pain [Recovering/Resolving]
  - Back pain [None]
  - Muscle spasms [None]
  - Paraesthesia [None]
  - Headache [None]
  - Muscle fatigue [None]
  - Irritability [None]
  - Personal relationship issue [None]
  - Anger [None]
  - Decreased interest [None]
  - Blood thyroid stimulating hormone increased [None]
  - Weight increased [None]
  - Apathy [None]
  - Musculoskeletal pain [None]
  - Nausea [None]
  - Feeling abnormal [None]
  - Asthenia [None]
  - Impatience [None]
  - Chest pain [None]
  - Gastrointestinal disorder [None]
  - Vertigo [None]
  - Arthralgia [Recovering/Resolving]
  - Pelvic pain [None]
  - Diarrhoea [None]
  - Disturbance in attention [None]
  - Impaired quality of life [None]
  - Nervousness [None]
  - Social avoidant behaviour [None]
  - Neuralgia [None]
  - Mobility decreased [None]
  - Myalgia [None]
  - Dyskinesia [None]

NARRATIVE: CASE EVENT DATE: 201708
